FAERS Safety Report 4539662-7 (Version None)
Quarter: 2004Q4

REPORT INFORMATION
  Report Type: 
  Country: None (occurrence: None)
  Receive Date: 20041228
  Receipt Date: 20041109
  Transmission Date: 20050328
  Serious: Yes (Disabling)
  Sender: FDA-Public Use
  Company Number: NO-MERCK-0411NOR00039

PATIENT
  Age: 69 Year
  Sex: Female

DRUGS (2)
  1. VIOXX [Suspect]
     Indication: HAND FRACTURE
     Route: 048
     Dates: start: 20040419, end: 20040425
  2. LEVOTHYROXINE SODIUM [Concomitant]
     Indication: HYPOTHYROIDISM
     Route: 048

REACTIONS (2)
  - CARDIOVASCULAR DISORDER [None]
  - VISUAL ACUITY REDUCED [None]
